FAERS Safety Report 4700757-6 (Version None)
Quarter: 2005Q2

REPORT INFORMATION
  Report Type: 
  Country: None (occurrence: None)
  Receive Date: 20050627
  Receipt Date: 20050615
  Transmission Date: 20051028
  Serious: Yes (Other)
  Sender: FDA-Public Use
  Company Number: 2005-06-1066

PATIENT
  Age: 48 Year
  Sex: Female

DRUGS (5)
  1. INTRON A [Suspect]
     Indication: CHRONIC MYELOID LEUKAEMIA
     Dosage: 6 X10^6 UQD
     Dates: start: 19970129
  2. INTERFERON ALFA INJECTABLE [Suspect]
     Indication: CHRONIC MYELOID LEUKAEMIA
     Dosage: 6 X10^6 UTIW
     Dates: start: 19970404
  3. HYDROXYUREA [Suspect]
     Indication: CHRONIC MYELOID LEUKAEMIA
     Dates: start: 19961101, end: 19970129
  4. HYDROXYUREA [Suspect]
     Indication: CHRONIC MYELOID LEUKAEMIA
     Dosage: 2000 MG
     Dates: start: 19970204
  5. HYDROXYUREA [Suspect]
     Indication: CHRONIC MYELOID LEUKAEMIA
     Dosage: 500 MG
     Dates: start: 19970227

REACTIONS (5)
  - BONE MARROW DEPRESSION [None]
  - BONE MARROW TRANSPLANT [None]
  - CONDITION AGGRAVATED [None]
  - LEUKOCYTOSIS [None]
  - PANCYTOPENIA [None]
